FAERS Safety Report 17704534 (Version 6)
Quarter: 2023Q1

REPORT INFORMATION
  Report Type: Spontaneous
  Country: US (occurrence: US)
  Receive Date: 20200424
  Receipt Date: 20230223
  Transmission Date: 20230418
  Serious: Yes (Other)
  Sender: FDA-Public Use
  Company Number: US-GILEAD-2020-0460991

PATIENT
  Age: 25 Year
  Sex: Female

DRUGS (3)
  1. VIREAD [Suspect]
     Active Substance: TENOFOVIR DISOPROXIL FUMARATE
     Indication: HIV infection
     Dosage: UNK
     Route: 065
     Dates: start: 2005, end: 2019
  2. TRUVADA [Suspect]
     Active Substance: EMTRICITABINE\TENOFOVIR DISOPROXIL FUMARATE
     Indication: HIV infection
     Dosage: UNK
     Route: 048
     Dates: start: 200501, end: 201712
  3. COMPLERA [Suspect]
     Active Substance: EMTRICITABINE\RILPIVIRINE HYDROCHLORIDE\TENOFOVIR DISOPROXIL FUMARATE
     Indication: HIV infection
     Dosage: UNK
     Route: 065
     Dates: start: 201201

REACTIONS (7)
  - Renal injury [Unknown]
  - Osteonecrosis [Unknown]
  - Multiple fractures [Unknown]
  - Osteoporosis [Not Recovered/Not Resolved]
  - Bone density decreased [Unknown]
  - Bone loss [Unknown]
  - Skeletal injury [Unknown]

NARRATIVE: CASE EVENT DATE: 20170101
